FAERS Safety Report 6756177-6 (Version None)
Quarter: 2010Q2

REPORT INFORMATION
  Report Type: 
  Country: None (occurrence: None)
  Receive Date: 20100604
  Receipt Date: 20100522
  Transmission Date: 20101027
  Serious: Yes (Disabling, Other)
  Sender: FDA-Public Use
  Company Number: PHHY2010US30683

PATIENT
  Sex: Female

DRUGS (6)
  1. FEMARA [Suspect]
     Dosage: 2.5 MG / DAY
     Route: 048
  2. CRESTOR [Concomitant]
     Dosage: 10 MG, QD
     Route: 048
  3. DOXEPIN HCL [Concomitant]
     Dosage: 10 MG, QD
     Route: 048
  4. BETIMOL [Concomitant]
     Dosage: UNK
     Dates: start: 20060101
  5. CADEVIT [Concomitant]
     Dosage: 5MG/ 20 MG
  6. KLONOPIN [Concomitant]
     Dosage: 0.5 MG, QD
     Route: 048

REACTIONS (9)
  - ALOPECIA [None]
  - ARTHRALGIA [None]
  - BONE PAIN [None]
  - DRY EYE [None]
  - EYE INFLAMMATION [None]
  - EYE PAIN [None]
  - FATIGUE [None]
  - IRITIS [None]
  - OCULAR HYPERAEMIA [None]
